FAERS Safety Report 8161437-0 (Version None)
Quarter: 2012Q1

REPORT INFORMATION
  Report Type: 
  Country: None (occurrence: None)
  Receive Date: 20120224
  Receipt Date: 20120220
  Transmission Date: 20120608
  Serious: Yes (Life-Threatening, Hospitalization)
  Sender: FDA-Public Use
  Company Number: US-BAYER-2011-070645

PATIENT
  Age: 30 Year
  Sex: Female
  Weight: 77.098 kg

DRUGS (23)
  1. YASMIN [Suspect]
     Dosage: UNK
     Dates: start: 20050719
  2. YASMIN [Suspect]
     Dosage: UNK
     Dates: start: 20040524
  3. YASMIN [Suspect]
     Dosage: UNK
     Dates: start: 20041014
  4. YASMIN [Suspect]
     Dosage: UNK
     Dates: start: 20051007
  5. DROSPIRENONE AND ETHINYL ESTRADIOL [Suspect]
     Indication: PREMENSTRUAL SYNDROME
     Dosage: UNK
     Dates: start: 20081229
  6. YASMIN [Suspect]
     Dosage: UNK
     Dates: start: 20040812
  7. YASMIN [Suspect]
     Dosage: UNK
     Dates: start: 20041227
  8. ZANTAC [Concomitant]
     Indication: GASTROOESOPHAGEAL REFLUX DISEASE
     Dosage: UNK
     Dates: start: 20030101
  9. YASMIN [Suspect]
     Dosage: UNK
     Dates: start: 20050425
  10. YASMIN [Suspect]
     Dosage: UNK
     Dates: start: 20060116
  11. DROSPIRENONE AND ETHINYL ESTRADIOL [Suspect]
     Dosage: UNK
     Dates: start: 20090318
  12. AMOXICILLIN AND CLAVULANATE POTASSIUM [Concomitant]
     Dosage: UNK
     Dates: start: 20030101
  13. LEVAQUIN [Concomitant]
     Dosage: UNK
     Dates: start: 20030101
  14. YAZ [Suspect]
     Indication: PREMENSTRUAL SYNDROME
     Dosage: UNK
     Dates: start: 20081016
  15. YASMIN [Suspect]
     Indication: PREMENSTRUAL SYNDROME
     Dosage: UNK
     Dates: start: 20040226
  16. NITROFURANTOIN [Concomitant]
     Dosage: UNK
     Dates: start: 20030101
  17. IBUPROFEN [Concomitant]
     Indication: PAIN
     Dosage: UNK
     Dates: start: 20030101
  18. IBUPROFEN [Concomitant]
     Indication: HEADACHE
  19. VITAMIN TAB [Concomitant]
     Indication: VITAMIN SUPPLEMENTATION
     Dosage: UNK
     Dates: start: 20030101
  20. ASCORBIC ACID [Concomitant]
     Dosage: UNK
     Dates: start: 20020101
  21. AZITHROMYCIN [Concomitant]
     Dosage: UNK
     Dates: start: 20030101
  22. ZOLOFT [Concomitant]
     Indication: DEPRESSION
     Dosage: ON AND OFF SINCE 2003
     Dates: start: 20030101
  23. ZOLOFT [Concomitant]
     Indication: PREMENSTRUAL SYNDROME

REACTIONS (5)
  - INJURY [None]
  - ANXIETY [None]
  - ANHEDONIA [None]
  - PAIN [None]
  - MYOCARDIAL INFARCTION [None]
